FAERS Safety Report 5083687-2 (Version None)
Quarter: 2006Q3

REPORT INFORMATION
  Report Type: 
  Country: None (occurrence: None)
  Receive Date: 20060818
  Receipt Date: 20060809
  Transmission Date: 20061208
  Serious: Yes (Hospitalization)
  Sender: FDA-Public Use
  Company Number: PHHO2006KR13249

PATIENT
  Age: 50 Year
  Sex: Female
  Weight: 52.1 kg

DRUGS (1)
  1. MYCOPHENOLIC ACID [Suspect]
     Indication: RENAL TRANSPLANT
     Dosage: 1260 MG / DAY
     Route: 048
     Dates: start: 20060425

REACTIONS (6)
  - CYTOMEGALOVIRUS INFECTION [None]
  - INCISIONAL HERNIA [None]
  - INCISIONAL HERNIA REPAIR [None]
  - LYMPHOCELE [None]
  - PNEUMONIA [None]
  - SURGERY [None]
